FAERS Safety Report 15539327 (Version 1)
Quarter: 2018Q4

REPORT INFORMATION
  Report Type: Spontaneous
  Country: US (occurrence: US)
  Receive Date: 20181022
  Receipt Date: 20181022
  Transmission Date: 20190205
  Serious: Yes (Hospitalization)
  Sender: FDA-Public Use
  Company Number: US-IPSEN BIOPHARMACEUTICALS, INC.-2018-15922

PATIENT
  Sex: Female
  Weight: 104.87 kg

DRUGS (1)
  1. SOMATULINE DEPOT [Suspect]
     Active Substance: LANREOTIDE ACETATE
     Indication: CARCINOID TUMOUR
     Dosage: INJECTION SITE- BUTTOCKS
     Route: 058
     Dates: start: 20170517

REACTIONS (3)
  - Abdominal pain upper [Recovered/Resolved]
  - Unevaluable event [Unknown]
  - Emergency care [Unknown]
